FAERS Safety Report 13097169 (Version 1)
Quarter: 2017Q1

REPORT INFORMATION
  Report Type: Spontaneous
  Country: US (occurrence: US)
  Receive Date: 20170109
  Receipt Date: 20170109
  Transmission Date: 20170428
  Serious: Yes (Death, Hospitalization, Other)
  Sender: FDA-Public Use
  Company Number: US-TOLMAR, INC.-2017US000136

PATIENT
  Age: 51 Year
  Sex: Male

DRUGS (2)
  1. BICALUTAMIDE. [Suspect]
     Active Substance: BICALUTAMIDE
     Indication: PROSTATE CANCER
     Route: 065
  2. ELIGARD [Suspect]
     Active Substance: LEUPROLIDE ACETATE
     Indication: PROSTATE CANCER
     Dosage: UNK
     Route: 065

REACTIONS (8)
  - Pulmonary mass [Unknown]
  - Splenic lesion [Unknown]
  - Lymphadenopathy [Unknown]
  - Malignant neoplasm progression [Fatal]
  - Hepatic lesion [Unknown]
  - Neuroendocrine carcinoma [Unknown]
  - Cushing^s syndrome [Recovering/Resolving]
  - Hyperadrenalism [Unknown]
